FAERS Safety Report 5040908-X (Version None)
Quarter: 2006Q2

REPORT INFORMATION
  Report Type: 
  Country: None (occurrence: None)
  Receive Date: 20060630
  Receipt Date: 20060630
  Transmission Date: 20061013
  Serious: Yes (Hospitalization)
  Sender: FDA-Public Use
  Company Number: None

PATIENT
  Age: 55 Year
  Sex: Female
  Weight: 46.2669 kg

DRUGS (3)
  1. TARCEVA [Suspect]
     Indication: LARYNGEAL CANCER
     Dosage: 150 MG PO DAILY
     Route: 048
     Dates: start: 20060606
  2. INTRA ARTERIAL CISPLATIN [Concomitant]
  3. RADIATION THERAPY [Concomitant]

REACTIONS (8)
  - CATHETER RELATED COMPLICATION [None]
  - DEVICE FAILURE [None]
  - DIARRHOEA [None]
  - EPISTAXIS [None]
  - HAEMOGLOBIN DECREASED [None]
  - INCORRECT DOSE ADMINISTERED [None]
  - NASAL DRYNESS [None]
  - TINNITUS [None]
